FAERS Safety Report 6220322-1 (Version None)
Quarter: 2009Q2

REPORT INFORMATION
  Report Type: 
  Country: None (occurrence: None)
  Receive Date: 20090521
  Receipt Date: 20090507
  Transmission Date: 20091009
  Serious: Yes (Other)
  Sender: FDA-Public Use
  Company Number: GAM-075-09 US

PATIENT

DRUGS (1)
  1. OCTAGAM [Suspect]
     Dosage: IV
     Route: 042

REACTIONS (1)
  - SYPHILIS TEST POSITIVE [None]
